FAERS Safety Report 5273724-4 (Version None)
Quarter: 2007Q1

REPORT INFORMATION
  Report Type: 
  Country: None (occurrence: None)
  Receive Date: 20070321
  Receipt Date: 20070321
  Transmission Date: 20070707
  Serious: Yes (Other)
  Sender: FDA-Public Use
  Company Number: None

PATIENT
  Sex: Female

DRUGS (1)
  1. BUPROPION HCL [Suspect]
     Dosage: TAKE 1 TABLET DAILY BY MOUTH
     Route: 048
     Dates: start: 20061228

REACTIONS (4)
  - AFFECTIVE DISORDER [None]
  - DISEASE RECURRENCE [None]
  - MEDICATION RESIDUE [None]
  - THERAPEUTIC RESPONSE UNEXPECTED WITH DRUG SUBSTITUTION [None]
